FAERS Safety Report 19884935 (Version 1)
Quarter: 2021Q3

REPORT INFORMATION
  Report Type: Spontaneous
  Country: US (occurrence: US)
  Receive Date: 20210927
  Receipt Date: 20210927
  Transmission Date: 20211014
  Serious: No
  Sender: FDA-Public Use
  Company Number: US-SA-2021SA315794

PATIENT
  Age: 52 Year
  Sex: Female

DRUGS (1)
  1. DUPIXENT [Suspect]
     Active Substance: DUPILUMAB
     Dosage: 300 MG, QD
     Route: 058
     Dates: start: 20210624

REACTIONS (2)
  - Oropharyngeal pain [Unknown]
  - Product use issue [Unknown]

NARRATIVE: CASE EVENT DATE: 20210624
